FAERS Safety Report 8175134-9 (Version None)
Quarter: 2012Q1

REPORT INFORMATION
  Report Type: 
  Country: None (occurrence: None)
  Receive Date: 20120229
  Receipt Date: 20120223
  Transmission Date: 20120608
  Serious: Yes (Other)
  Sender: FDA-Public Use
  Company Number: PHHY2012IT015508

PATIENT
  Sex: Female

DRUGS (2)
  1. ZOMETA [Suspect]
     Indication: METASTASES TO BONE
     Dosage: 4 MG, QMO
     Route: 042
     Dates: start: 20110131, end: 20111201
  2. NAVELBINE [Concomitant]
     Dosage: 10 MG/ML, UNK
     Route: 042

REACTIONS (3)
  - BONE LESION [None]
  - PRIMARY SEQUESTRUM [None]
  - OSTEONECROSIS OF JAW [None]
